FAERS Safety Report 15454876 (Version 1)
Quarter: 2018Q4

REPORT INFORMATION
  Report Type: Spontaneous
  Country: DE (occurrence: DE)
  Receive Date: 20181002
  Receipt Date: 20181002
  Transmission Date: 20190204
  Serious: Yes (Hospitalization, Other)
  Sender: FDA-Public Use
  Company Number: DE-BAUSCH-BL-2018-005389

PATIENT
  Age: 52 Year
  Sex: Female

DRUGS (13)
  1. VENLAFAXINE [Suspect]
     Active Substance: VENLAFAXINE HYDROCHLORIDE
     Indication: PRODUCT USED FOR UNKNOWN INDICATION
     Route: 048
     Dates: start: 20151003, end: 20151005
  2. DELIX (RAMIPRIL) [Concomitant]
     Active Substance: RAMIPRIL
     Route: 048
     Dates: start: 20151015, end: 20151028
  3. TAVOR (LORAZEPAM) [Concomitant]
     Active Substance: LORAZEPAM
     Indication: PRODUCT USED FOR UNKNOWN INDICATION
     Route: 048
     Dates: start: 20151005, end: 20151104
  4. VENLAFAXINE [Suspect]
     Active Substance: VENLAFAXINE HYDROCHLORIDE
     Dosage: 150 MG, QD
     Route: 048
     Dates: start: 20151022, end: 20151023
  5. VENLAFAXINE [Suspect]
     Active Substance: VENLAFAXINE HYDROCHLORIDE
     Route: 048
     Dates: start: 20151008, end: 20151021
  6. VENLAFAXINE [Suspect]
     Active Substance: VENLAFAXINE HYDROCHLORIDE
     Route: 048
     Dates: start: 20151024, end: 20151029
  7. VENLAFAXINE [Suspect]
     Active Substance: VENLAFAXINE HYDROCHLORIDE
     Route: 048
     Dates: start: 20151006, end: 20151007
  8. DELIX (RAMIPRIL) [Concomitant]
     Active Substance: RAMIPRIL
     Route: 048
     Dates: start: 20150911, end: 20151014
  9. DELIX (RAMIPRIL) [Concomitant]
     Active Substance: RAMIPRIL
     Indication: PRODUCT USED FOR UNKNOWN INDICATION
     Route: 048
     Dates: start: 20151029
  10. VENLAFAXINE [Suspect]
     Active Substance: VENLAFAXINE HYDROCHLORIDE
     Route: 048
     Dates: start: 20151030, end: 20151102
  11. ABILIFY [Suspect]
     Active Substance: ARIPIPRAZOLE
     Indication: PRODUCT USED FOR UNKNOWN INDICATION
     Route: 048
     Dates: start: 20151007
  12. DELIX (RAMIPRIL) [Concomitant]
     Active Substance: RAMIPRIL
     Route: 048
     Dates: start: 20150825, end: 20150910
  13. SEROQUEL [Concomitant]
     Active Substance: QUETIAPINE FUMARATE
     Indication: PRODUCT USED FOR UNKNOWN INDICATION
     Route: 048
     Dates: start: 20150929, end: 20151021

REACTIONS (10)
  - Muscle twitching [Unknown]
  - Suicidal ideation [Unknown]
  - Hypertensive crisis [Unknown]
  - Nasopharyngitis [Unknown]
  - Head discomfort [Unknown]
  - Renal pain [Unknown]
  - Dyspnoea exertional [Unknown]
  - Hypertension [Recovered/Resolved]
  - Dysuria [Unknown]
  - Peripheral swelling [Unknown]

NARRATIVE: CASE EVENT DATE: 20151007
